FAERS Safety Report 16630706 (Version 1)
Quarter: 2019Q3

REPORT INFORMATION
  Report Type: Spontaneous
  Country: GR (occurrence: GR)
  Receive Date: 20190725
  Receipt Date: 20190725
  Transmission Date: 20191004
  Serious: Yes (Other)
  Sender: FDA-Public Use
  Company Number: GR-ACCORD-148643

PATIENT
  Age: 42 Year
  Sex: Female

DRUGS (3)
  1. AVASTIN [Suspect]
     Active Substance: BEVACIZUMAB
     Indication: OVARIAN CANCER
     Dosage: ALSO RECEIVED ON 23-JAN-2014,JUN-2017,JUN-2014 TO FEB-2015
     Route: 065
     Dates: start: 201404
  2. PACLITAXEL/PACLITAXEL LIPOSOME [Suspect]
     Active Substance: PACLITAXEL
     Indication: OVARIAN CANCER
     Dosage: ALSO RECEIVED 125 MG/M2 MILLIGRAM(S)/SQ. METER ON JUN-2017
     Route: 065
     Dates: start: 201404
  3. CARBOPLATIN. [Suspect]
     Active Substance: CARBOPLATIN
     Indication: OVARIAN CANCER
     Dosage: AUC 5,AUC 6 ALSO RECEIVED ON APR-2014
     Route: 065
     Dates: start: 201706

REACTIONS (2)
  - Neurotoxicity [Recovering/Resolving]
  - Ovarian cancer recurrent [Unknown]

NARRATIVE: CASE EVENT DATE: 201505
